FAERS Safety Report 12228262 (Version 1)
Quarter: 2016Q2

REPORT INFORMATION
  Report Type: Spontaneous
  Country: US (occurrence: US)
  Receive Date: 20160401
  Receipt Date: 20160401
  Transmission Date: 20160815
  Serious: No
  Sender: FDA-Public Use
  Company Number: US-TEVA-642957ACC

PATIENT
  Age: 26 Year
  Sex: Female
  Weight: 77.63 kg

DRUGS (1)
  1. PARAGARD T 380A [Suspect]
     Active Substance: COPPER
     Indication: CONTRACEPTION
     Dates: start: 201412

REACTIONS (5)
  - Menorrhagia [Not Recovered/Not Resolved]
  - Weight increased [Not Recovered/Not Resolved]
  - Vulvovaginal burning sensation [Recovered/Resolved]
  - Skin irritation [Recovered/Resolved]
  - Vaginal inflammation [Recovered/Resolved]

NARRATIVE: CASE EVENT DATE: 201502
